FAERS Safety Report 6539291-X (Version None)
Quarter: 2010Q1

REPORT INFORMATION
  Report Type: 
  Country: None (occurrence: None)
  Receive Date: 20100115
  Receipt Date: 20100113
  Transmission Date: 20100710
  Serious: Yes (Death)
  Sender: FDA-Public Use
  Company Number: BE-JNJFOC-20100104589

PATIENT
  Age: 26 Year
  Sex: Male

DRUGS (2)
  1. HALDOL [Suspect]
     Indication: AGGRESSION
     Route: 065
  2. AMPHETAMINE SULFATE [Concomitant]
     Indication: WEIGHT DECREASED
     Route: 065

REACTIONS (1)
  - DEATH [None]
